FAERS Safety Report 24610584 (Version 2)
Quarter: 2024Q4

REPORT INFORMATION
  Report Type: Spontaneous
  Country: US (occurrence: US)
  Receive Date: 20241112
  Receipt Date: 20241118
  Transmission Date: 20250114
  Serious: No
  Sender: ROCHE
  Company Number: US-ROCHE-10000129090

PATIENT
  Age: 78 Year
  Sex: Male

DRUGS (10)
  1. RITUXIMAB [Suspect]
     Active Substance: RITUXIMAB
     Indication: Central nervous system lymphoma
     Route: 065
  2. CYCLOPHOSPHAMIDE [Suspect]
     Active Substance: CYCLOPHOSPHAMIDE
     Indication: Central nervous system lymphoma
     Route: 065
  3. DOXORUBICIN HYDROCHLORIDE [Suspect]
     Active Substance: DOXORUBICIN HYDROCHLORIDE
     Indication: Central nervous system lymphoma
     Route: 065
  4. VINCRISTINE [Suspect]
     Active Substance: VINCRISTINE
     Indication: Central nervous system lymphoma
     Route: 065
  5. METHOTREXATE [Suspect]
     Active Substance: METHOTREXATE
     Indication: Central nervous system lymphoma
     Route: 065
  6. PREDNISONE [Suspect]
     Active Substance: PREDNISONE
     Indication: Central nervous system lymphoma
     Route: 065
  7. IBRUTINIB [Concomitant]
     Active Substance: IBRUTINIB
  8. BENDAMUSTINE [Concomitant]
     Active Substance: BENDAMUSTINE
  9. TISAGENLECLEUCEL [Concomitant]
     Active Substance: TISAGENLECLEUCEL
  10. ISAVUCONAZONIUM [Concomitant]
     Active Substance: ISAVUCONAZONIUM

REACTIONS (2)
  - COVID-19 [Unknown]
  - Nephropathy toxic [Unknown]
